FAERS Safety Report 6390239-0 (Version None)
Quarter: 2009Q4

REPORT INFORMATION
  Report Type: 
  Country: None (occurrence: None)
  Receive Date: 20091006
  Receipt Date: 20090930
  Transmission Date: 20100525
  Serious: Yes (Hospitalization)
  Sender: FDA-Public Use
  Company Number: B0591258A

PATIENT
  Sex: Male

DRUGS (7)
  1. VALTREX [Suspect]
     Indication: HERPES ZOSTER
     Dosage: 1000MG THREE TIMES PER DAY
     Route: 048
     Dates: start: 20090829
  2. ARASENA-A [Concomitant]
     Indication: HERPES ZOSTER
     Dosage: 300MG PER DAY
     Route: 042
     Dates: start: 20090828
  3. TAKEPRON [Concomitant]
     Indication: REFLUX OESOPHAGITIS
     Dosage: 15MG PER DAY
     Route: 048
  4. ASPIRIN [Concomitant]
     Indication: ANGINA PECTORIS
     Dosage: 100MG PER DAY
     Route: 048
  5. SIGMART [Concomitant]
     Indication: ANGINA PECTORIS
     Dosage: 15MG PER DAY
     Route: 048
  6. FOIPAN [Concomitant]
     Indication: PANCREATITIS CHRONIC
     Dosage: 100MG PER DAY
     Route: 048
  7. PLAVIX [Concomitant]
     Indication: ANGINA PECTORIS
     Dosage: 75MG PER DAY
     Route: 048

REACTIONS (3)
  - DYSARTHRIA [None]
  - HALLUCINATIONS, MIXED [None]
  - MUSCULAR WEAKNESS [None]
